FAERS Safety Report 10142822 (Version 1)
Quarter: 2014Q2

REPORT INFORMATION
  Report Type: Spontaneous
  Country: US (occurrence: US)
  Receive Date: 20140430
  Receipt Date: 20140430
  Transmission Date: 20141212
  Serious: Yes (Other)
  Sender: FDA-Public Use
  Company Number: US-ASTRAZENECA-2014SE28090

PATIENT
  Age: 40 Year
  Sex: Female
  Weight: 62.6 kg

DRUGS (3)
  1. TOPROL-XL [Suspect]
     Indication: HYPERTHYROIDISM
     Route: 048
     Dates: start: 2000, end: 2014
  2. TOPROL-XL [Suspect]
     Indication: HYPERTHYROIDISM
     Route: 048
     Dates: start: 2014
  3. TYLENOL [Concomitant]
     Indication: HEADACHE
     Dosage: AS REQUIRED

REACTIONS (7)
  - Blood pressure increased [Recovered/Resolved]
  - Therapeutic response changed [Unknown]
  - Heart rate decreased [Unknown]
  - Headache [Unknown]
  - Off label use [Unknown]
  - Off label use [Unknown]
  - Drug dose omission [Unknown]
